APPROVED DRUG PRODUCT: OSELTAMIVIR PHOSPHATE
Active Ingredient: OSELTAMIVIR PHOSPHATE
Strength: EQ 30MG BASE
Dosage Form/Route: CAPSULE;ORAL
Application: A210157 | Product #001
Applicant: RISING PHARMA HOLDING INC
Approved: Jan 21, 2021 | RLD: No | RS: No | Type: DISCN